FAERS Safety Report 5249406-1 (Version None)
Quarter: 2007Q1

REPORT INFORMATION
  Report Type: 
  Country: None (occurrence: None)
  Receive Date: 20070228
  Receipt Date: 20061009
  Transmission Date: 20070707
  Serious: No
  Sender: FDA-Public Use
  Company Number: S2006US18145

PATIENT
  Sex: Male

DRUGS (1)
  1. VALTREX [Suspect]
     Indication: DRUG USE FOR UNKNOWN INDICATION
     Route: 065

REACTIONS (3)
  - BLISTER [None]
  - DRUG INEFFECTIVE [None]
  - SWELLING [None]
